FAERS Safety Report 8522434-6 (Version None)
Quarter: 2012Q3

REPORT INFORMATION
  Report Type: 
  Country: None (occurrence: None)
  Receive Date: 20120719
  Receipt Date: 20120713
  Transmission Date: 20120928
  Serious: Yes (Hospitalization)
  Sender: FDA-Public Use
  Company Number: US-PFIZER INC-2012169864

PATIENT

DRUGS (2)
  1. PROPOFOL [Suspect]
     Dosage: UNK
  2. CLINDAMYCIN PHOSPHATE [Suspect]
     Dosage: UNK

REACTIONS (5)
  - HEART RATE INCREASED [None]
  - BALANCE DISORDER [None]
  - RASH [None]
  - ASTHENIA [None]
  - PYREXIA [None]
